FAERS Safety Report 5325339-7 (Version None)
Quarter: 2007Q2

REPORT INFORMATION
  Report Type: 
  Country: None (occurrence: None)
  Receive Date: 20070509
  Receipt Date: 20070423
  Transmission Date: 20071010
  Serious: Yes (Hospitalization)
  Sender: FDA-Public Use
  Company Number: 2007RR-07130

PATIENT
  Age: 29 Year
  Sex: Female

DRUGS (3)
  1. CODEINE PHOSPHATE(CODEINE) UNKNOWN [Suspect]
  2. ACETAMINOPHEN [Suspect]
     Dosage: ORAL
     Route: 048
  3. PAROXETINE [Suspect]

REACTIONS (3)
  - HEPATIC FUNCTION ABNORMAL [None]
  - LIVER DISORDER [None]
  - OVERDOSE [None]
